FAERS Safety Report 11311986 (Version 1)
Quarter: 2015Q3

REPORT INFORMATION
  Report Type: Spontaneous
  Country: US (occurrence: None)
  Receive Date: 20150723
  Receipt Date: 20150723
  Transmission Date: 20151125
  Serious: Yes (Hospitalization)
  Sender: FDA-Public Use
  Company Number: AMAG201500757

PATIENT
  Age: 30 Year
  Sex: Female

DRUGS (1)
  1. MAKENA [Suspect]
     Active Substance: HYDROXYPROGESTERONE CAPROATE
     Indication: PREMATURE DELIVERY
     Route: 030
     Dates: end: 20150708

REACTIONS (5)
  - Caesarean section [None]
  - Premature delivery [None]
  - Preterm premature rupture of membranes [None]
  - Maternal exposure during pregnancy [None]
  - Umbilical cord prolapse [None]

NARRATIVE: CASE EVENT DATE: 20150708
